FAERS Safety Report 4499913-4 (Version None)
Quarter: 2004Q4

REPORT INFORMATION
  Report Type: 
  Country: None (occurrence: None)
  Receive Date: 20041112
  Receipt Date: 20041102
  Transmission Date: 20050328
  Serious: Yes (Hospitalization)
  Sender: FDA-Public Use
  Company Number: FR-JNJFOC-20041100870

PATIENT
  Age: 7 Year
  Sex: Male
  Weight: 27 kg

DRUGS (1)
  1. HALDOL [Suspect]
     Indication: IRRITABILITY
     Dosage: 40 DROPS TID (2 MG/ML)
     Route: 049

REACTIONS (5)
  - DISTURBANCE IN ATTENTION [None]
  - JOINT ANKYLOSIS [None]
  - MEDICATION ERROR [None]
  - SOMNOLENCE [None]
  - TREMOR [None]
